FAERS Safety Report 8973462 (Version 1)
Quarter: 2012Q4

REPORT INFORMATION
  Report Type: 
  Country: US (occurrence: US)
  Receive Date: 20121218
  Receipt Date: 20121218
  Transmission Date: 20130627
  Serious: No
  Sender: FDA-Public Use
  Company Number: US-BRISTOL-MYERS SQUIBB COMPANY-16807935

PATIENT
  Age: 48 Year
  Sex: Female
  Weight: 72.56 kg

DRUGS (2)
  1. ABILIFY [Suspect]
     Dosage: increased to 4 mg
  2. EFFEXOR XR [Concomitant]

REACTIONS (6)
  - Increased appetite [Unknown]
  - Weight increased [Unknown]
  - Constipation [Unknown]
  - Anxiety [Unknown]
  - Irritable bowel syndrome [Unknown]
  - Feeling abnormal [Unknown]
